FAERS Safety Report 17431121 (Version 1)
Quarter: 2020Q1

REPORT INFORMATION
  Report Type: Spontaneous
  Country: US (occurrence: US)
  Receive Date: 20200217
  Receipt Date: 20200217
  Transmission Date: 20200409
  Serious: Yes (Hospitalization)
  Sender: FDA-Public Use
  Company Number: None

PATIENT
  Age: 39 Year
  Sex: Male

DRUGS (4)
  1. BENADRYL ALG TAB 25 MG [Concomitant]
  2. ENBREL [Suspect]
     Active Substance: ETANERCEPT
     Indication: ANKYLOSING SPONDYLITIS
     Dosage: ?          OTHER FREQUENCY:WEEKLY;?
     Route: 058
     Dates: start: 20190105
  3. NORCO TAB 10-325 MG [Concomitant]
  4. PREDNISONE TAB 20 MG [Concomitant]

REACTIONS (6)
  - Musculoskeletal chest pain [None]
  - Oral herpes [None]
  - Musculoskeletal disorder [None]
  - Wound [None]
  - Abdominal pain [None]
  - Blister [None]
